FAERS Safety Report 7068609-7 (Version None)
Quarter: 2010Q4

REPORT INFORMATION
  Report Type: 
  Country: None (occurrence: None)
  Receive Date: 20101020
  Receipt Date: 20101005
  Transmission Date: 20110411
  Serious: Yes (Other)
  Sender: FDA-Public Use
  Company Number: 2010AP002096

PATIENT
  Sex: Female

DRUGS (14)
  1. ALENDRONATE SODIUM [Suspect]
     Dosage: 70 MG;PO
     Route: 048
     Dates: start: 20100902, end: 20100916
  2. ASPIRIN [Concomitant]
  3. BUDESONIDE [Concomitant]
  4. COLECALCIFEROL (COLECALCIFEROL) [Concomitant]
  5. LAUROMACROGOL 400 (LAUROMACROGOL 400) [Concomitant]
  6. SOYA OIL (SOYA OIL) [Concomitant]
  7. UREA (UREA) [Concomitant]
  8. FORMOTEROL (FORMOTEROL) [Concomitant]
  9. ISPAGHULA HUSK (ISPAGHULA HUSK) [Concomitant]
  10. LATANOPROST [Concomitant]
  11. LERCANIDIPINE [Concomitant]
  12. RISEDRONATE SODIUM [Concomitant]
  13. CALCITRIOL [Concomitant]
  14. SALBUTAMOL (SALBUTAMOL) [Concomitant]

REACTIONS (2)
  - DYSPHONIA [None]
  - PALPITATIONS [None]
